FAERS Safety Report 6027694-1 (Version None)
Quarter: 2009Q1

REPORT INFORMATION
  Report Type: 
  Country: None (occurrence: None)
  Receive Date: 20090105
  Receipt Date: 20081229
  Transmission Date: 20090719
  Serious: Yes (Death, Hospitalization)
  Sender: FDA-Public Use
  Company Number: GR-WYE-H04846508

PATIENT
  Age: 65 Year
  Sex: Male

DRUGS (2)
  1. AMIODARONE HCL [Suspect]
     Indication: ATRIAL FIBRILLATION
  2. SOTALOL [Concomitant]
     Indication: ATRIAL FIBRILLATION

REACTIONS (3)
  - HYPERTHYROIDISM [None]
  - MULTI-ORGAN FAILURE [None]
  - PULMONARY FIBROSIS [None]
